FAERS Safety Report 5472590-1 (Version None)
Quarter: 2007Q4

REPORT INFORMATION
  Report Type: 
  Country: None (occurrence: None)
  Receive Date: 20071001
  Receipt Date: 20060814
  Transmission Date: 20080405
  Serious: No
  Sender: FDA-Public Use
  Company Number: US-ASTRAZENECA-2006UW14861

PATIENT
  Age: 67 Year
  Sex: Female
  Weight: 83.5 kg

DRUGS (17)
  1. ARIMIDEX [Suspect]
     Indication: BREAST CANCER FEMALE
     Route: 048
  2. SYNTHROID [Concomitant]
  3. LIPITOR [Concomitant]
  4. LUNESTA [Concomitant]
  5. ACTOS [Concomitant]
  6. COZAAR [Concomitant]
  7. URSODIOL [Concomitant]
  8. FLUOXETINE [Concomitant]
  9. VITAMIN CAP [Concomitant]
  10. ESTER C [Concomitant]
  11. NEXIUM [Concomitant]
     Route: 048
  12. METFORMIN HCL [Concomitant]
  13. SLOW-FE [Concomitant]
  14. POTASSIUM KLORX [Concomitant]
  15. FLAXSEED [Concomitant]
  16. QUININE SULFATE [Concomitant]
  17. EXCEDRIN [Concomitant]

REACTIONS (1)
  - CHILLS [None]
